FAERS Safety Report 10395411 (Version 8)
Quarter: 2015Q1

REPORT INFORMATION
  Report Type: Spontaneous
  Country: US (occurrence: US)
  Receive Date: 20140820
  Receipt Date: 20150330
  Transmission Date: 20150720
  Serious: Yes (Hospitalization)
  Sender: FDA-Public Use
  Company Number: US-PFIZER INC-2014229018

PATIENT
  Age: 76 Year
  Sex: Female
  Weight: 77 kg

DRUGS (11)
  1. SUTENT [Suspect]
     Active Substance: SUNITINIB MALATE
     Indication: METASTATIC RENAL CELL CARCINOMA
     Dosage: 50 MG DAILY, CYCLIC (4 WEEKS ON 2 WEEKS OFF)
     Route: 048
     Dates: start: 20140805, end: 20140915
  2. HUMALOG [Concomitant]
     Active Substance: INSULIN LISPRO
     Indication: DIABETES MELLITUS
     Dosage: UNK
  3. POTASSIUM CHLORIDE. [Concomitant]
     Active Substance: POTASSIUM CHLORIDE
     Dosage: UNK
  4. ASPIRIN. [Concomitant]
     Active Substance: ASPIRIN
     Dosage: 81 MG, UNK
  5. LOSARTAN [Concomitant]
     Active Substance: LOSARTAN
     Dosage: UNK
  6. TRAMADOL [Concomitant]
     Active Substance: TRAMADOL
     Dosage: UNK, PRN
  7. HUMALOG [Concomitant]
     Active Substance: INSULIN LISPRO
     Dosage: LOWER DOSE
  8. SUTENT [Suspect]
     Active Substance: SUNITINIB MALATE
     Dosage: 25 MG DAILY, CYCLIC (4 WEEKS ON 2 WEEKS OFF)
     Route: 048
     Dates: start: 20140923
  9. METOPROLOL [Concomitant]
     Active Substance: METOPROLOL
     Dosage: UNK
  10. PHENERGAN [Concomitant]
     Active Substance: PROMETHAZINE HYDROCHLORIDE
     Indication: NAUSEA
     Dosage: DAILY AS NEEDED
  11. SUTENT [Suspect]
     Active Substance: SUNITINIB MALATE
     Dosage: 25 MG DAILY, CYCLIC (4 WEEKS ON 2 WEEKS OFF)
     Route: 048
     Dates: start: 20141010, end: 20150126

REACTIONS (14)
  - Glycosylated haemoglobin increased [Recovered/Resolved]
  - Weight bearing difficulty [Unknown]
  - Disease progression [Not Recovered/Not Resolved]
  - Metastatic renal cell carcinoma [Not Recovered/Not Resolved]
  - Blood pressure increased [Recovering/Resolving]
  - Fatigue [Unknown]
  - Hepatic enzyme increased [Unknown]
  - Asthenia [Recovering/Resolving]
  - Blood glucose decreased [Unknown]
  - Nausea [Recovering/Resolving]
  - Arthralgia [Unknown]
  - Diarrhoea [Unknown]
  - Pain in extremity [Unknown]
  - Dehydration [Unknown]

NARRATIVE: CASE EVENT DATE: 2014
